FAERS Safety Report 6106963-0 (Version None)
Quarter: 2009Q1

REPORT INFORMATION
  Report Type: 
  Country: None (occurrence: None)
  Receive Date: 20090309
  Receipt Date: 20090303
  Transmission Date: 20090719
  Serious: Yes (Other)
  Sender: FDA-Public Use
  Company Number: US-JNJFOC-20090301080

PATIENT
  Sex: Female

DRUGS (2)
  1. DURAGESIC-100 [Suspect]
     Indication: INTERVERTEBRAL DISC PROTRUSION
     Route: 062
  2. UNSPECIFIED MEDICATIONS [Concomitant]

REACTIONS (2)
  - JOINT INJURY [None]
  - RENAL FAILURE [None]
